FAERS Safety Report 8132995-7 (Version None)
Quarter: 2012Q1

REPORT INFORMATION
  Report Type: 
  Country: None (occurrence: None)
  Receive Date: 20120213
  Receipt Date: 20120203
  Transmission Date: 20120608
  Serious: Yes (Death, Hospitalization, Other)
  Sender: FDA-Public Use
  Company Number: NL-BAXTER-2012BH003411

PATIENT
  Age: 54 Year
  Sex: Male

DRUGS (18)
  1. PHYSIOSOL IN PLASTIC CONTAINER [Suspect]
     Route: 033
     Dates: start: 20120129
  2. PHYSIOSOL IN PLASTIC CONTAINER [Suspect]
     Route: 033
  3. PHYSIOSOL IN PLASTIC CONTAINER [Suspect]
     Route: 033
  4. EXTRANEAL [Suspect]
     Indication: PERITONEAL DIALYSIS
     Route: 033
     Dates: start: 20120129
  5. EXTRANEAL [Suspect]
     Route: 033
  6. PHYSIOSOL IN PLASTIC CONTAINER [Suspect]
     Route: 033
  7. PHYSIOSOL IN PLASTIC CONTAINER [Suspect]
     Route: 033
  8. PHYSIOSOL IN PLASTIC CONTAINER [Suspect]
     Indication: PERITONEAL DIALYSIS
     Route: 033
     Dates: start: 20120129
  9. EXTRANEAL [Suspect]
     Route: 033
  10. PHYSIOSOL IN PLASTIC CONTAINER [Suspect]
     Route: 033
     Dates: start: 20120129
  11. PHYSIOSOL IN PLASTIC CONTAINER [Suspect]
     Route: 033
  12. PHYSIOSOL IN PLASTIC CONTAINER [Suspect]
     Route: 033
  13. PHYSIOSOL IN PLASTIC CONTAINER [Suspect]
     Route: 033
     Dates: start: 20120129
  14. PHYSIOSOL IN PLASTIC CONTAINER [Suspect]
     Route: 033
  15. PHYSIOSOL IN PLASTIC CONTAINER [Suspect]
     Route: 033
  16. EXTRANEAL [Suspect]
     Route: 033
     Dates: start: 20120129
  17. PHYSIOSOL IN PLASTIC CONTAINER [Suspect]
     Route: 033
  18. PHYSIOSOL IN PLASTIC CONTAINER [Suspect]
     Route: 033

REACTIONS (2)
  - DEATH [None]
  - INFECTIOUS PERITONITIS [None]
